FAERS Safety Report 9295126 (Version 1)
Quarter: 2013Q2

REPORT INFORMATION
  Report Type: Spontaneous
  Country: US (occurrence: US)
  Receive Date: 20130517
  Receipt Date: 20130517
  Transmission Date: 20140414
  Serious: Yes (Other)
  Sender: FDA-Public Use
  Company Number: US-TEVA-405501USA

PATIENT
  Age: 59 Year
  Sex: Male
  Weight: 72.64 kg

DRUGS (4)
  1. PROAIR HFA [Suspect]
     Indication: ASTHMA
     Route: 055
  2. PROAIR HFA [Suspect]
     Indication: CHRONIC OBSTRUCTIVE PULMONARY DISEASE
  3. ADVAIR [Concomitant]
     Indication: ASTHMA
  4. ADVAIR [Concomitant]
     Indication: CHRONIC OBSTRUCTIVE PULMONARY DISEASE

REACTIONS (2)
  - Dyspnoea [Unknown]
  - Inappropriate schedule of drug administration [Unknown]
